FAERS Safety Report 9750527 (Version 3)
Quarter: 2014Q1

REPORT INFORMATION
  Report Type: Spontaneous
  Country: JP (occurrence: JP)
  Receive Date: 20131212
  Receipt Date: 20140321
  Transmission Date: 20141002
  Serious: Yes (Death, Hospitalization)
  Sender: FDA-Public Use
  Company Number: JP-BRISTOL-MYERS SQUIBB COMPANY-19892900

PATIENT
  Age: 90 Year
  Sex: Female

DRUGS (9)
  1. METGLUCO [Suspect]
     Indication: DIABETES MELLITUS
     Route: 048
     Dates: end: 20131007
  2. AMARYL [Concomitant]
     Indication: DIABETES MELLITUS
     Route: 048
     Dates: start: 20131007
  3. LIVALO [Concomitant]
     Indication: HYPERLIPIDAEMIA
     Route: 048
     Dates: start: 20131007
  4. HALFDIGOXIN [Concomitant]
     Route: 048
     Dates: end: 20131007
  5. MAGMITT [Concomitant]
     Route: 048
     Dates: end: 20131007
  6. DIART [Concomitant]
     Route: 048
     Dates: end: 20131007
  7. NU-LOTAN [Concomitant]
     Route: 048
  8. KETOPROFEN [Concomitant]
  9. TENELIA [Concomitant]

REACTIONS (4)
  - Blood creatine phosphokinase increased [Fatal]
  - Lactic acidosis [Fatal]
  - Dyspnoea [Fatal]
  - Acute myocardial infarction [Fatal]
